FAERS Safety Report 4377420-7 (Version None)
Quarter: 2004Q2

REPORT INFORMATION
  Report Type: 
  Country: None (occurrence: None)
  Receive Date: 20040609
  Receipt Date: 20040220
  Transmission Date: 20050107
  Serious: No
  Sender: FDA-Public Use
  Company Number: 2004192566US

PATIENT
  Age: 76 Year
  Sex: Male
  Weight: 88.4 kg

DRUGS (8)
  1. BEXTRA [Suspect]
     Indication: LOCALISED OSTEOARTHRITIS
     Dosage: 10 - 20 MG
     Dates: end: 20031201
  2. BEXTRA [Suspect]
     Indication: LOCALISED OSTEOARTHRITIS
     Dosage: 10 - 20 MG
     Dates: start: 20031209, end: 20040101
  3. LIPITOR [Concomitant]
  4. NEXIUM [Concomitant]
  5. PREDNISONE [Concomitant]
  6. COUMADIN [Concomitant]
  7. DYAZIDE [Concomitant]
  8. OSCAL [Concomitant]

REACTIONS (2)
  - HEADACHE [None]
  - PROTHROMBIN TIME PROLONGED [None]
